FAERS Safety Report 7374736-7 (Version None)
Quarter: 2011Q1

REPORT INFORMATION
  Report Type: 
  Country: None (occurrence: None)
  Receive Date: 20110325
  Receipt Date: 20100920
  Transmission Date: 20110831
  Serious: Yes (Other)
  Sender: FDA-Public Use
  Company Number: US-MYLANLABS-2010S1017303

PATIENT
  Age: 39 Year
  Sex: Female

DRUGS (4)
  1. OXYCODONE [Concomitant]
     Route: 048
  2. FENTANYL-100 [Suspect]
     Indication: MIGRAINE
     Dosage: CHANGED Q72H
     Route: 062
     Dates: start: 20100601, end: 20100915
  3. ZOFRAN [Concomitant]
     Indication: NAUSEA
     Route: 048
  4. FENTANYL-100 [Suspect]
     Indication: PAIN
     Dosage: CHANGED Q72H
     Route: 062
     Dates: start: 20100601, end: 20100915

REACTIONS (4)
  - CONVULSION [None]
  - DRUG EFFECT DECREASED [None]
  - MIGRAINE [None]
  - DRUG WITHDRAWAL SYNDROME [None]
